FAERS Safety Report 9130629 (Version 1)
Quarter: 2013Q1

REPORT INFORMATION
  Report Type: Spontaneous
  Country: CO (occurrence: CO)
  Receive Date: 20130301
  Receipt Date: 20130301
  Transmission Date: 20140127
  Serious: Yes (Hospitalization)
  Sender: FDA-Public Use
  Company Number: CO-AMGEN-COLSP2013005599

PATIENT
  Age: 47 Year
  Sex: Female

DRUGS (7)
  1. ENBREL [Suspect]
     Indication: RHEUMATOID ARTHRITIS
     Dosage: 50 MG, WEEKLY
     Route: 058
     Dates: start: 20130111
  2. ENBREL [Suspect]
     Dosage: 50 MG, WEEKLY
     Route: 058
     Dates: end: 20130209
  3. NAPROXEN [Concomitant]
     Indication: ARTHRALGIA
     Dosage: 150 MG, AS NEEDED
     Route: 048
     Dates: start: 201210
  4. NAPROXEN [Concomitant]
     Indication: ARTHRITIS
  5. TRAMADOL [Concomitant]
     Indication: ARTHRALGIA
     Dosage: 8 DROPS, AS NEEDED
     Route: 048
     Dates: start: 201210
  6. TRAMADOL [Concomitant]
     Indication: ARTHRITIS
  7. METHOTREXATE [Concomitant]
     Indication: RHEUMATOID ARTHRITIS
     Dosage: 3 TABLETS OF 7.5 MG, WEEKLY (SATURDAYS)
     Route: 048
     Dates: start: 201212

REACTIONS (11)
  - Movement disorder [Recovered/Resolved]
  - Arthritis [Recovered/Resolved]
  - Gastritis [Recovered/Resolved]
  - Nausea [Recovered/Resolved]
  - Abdominal pain upper [Recovered/Resolved]
  - Decreased appetite [Recovered/Resolved]
  - Headache [Recovered/Resolved]
  - Malaise [Recovered/Resolved]
  - Dizziness [Recovered/Resolved]
  - Pyrexia [Recovered/Resolved]
  - Vomiting [Recovered/Resolved]
